FAERS Safety Report 6038984-0 (Version None)
Quarter: 2009Q1

REPORT INFORMATION
  Report Type: 
  Country: None (occurrence: None)
  Receive Date: 20090115
  Receipt Date: 20090105
  Transmission Date: 20090719
  Serious: Yes (Death)
  Sender: FDA-Public Use
  Company Number: US-MERCK-0901USA00961

PATIENT
  Age: 53 Year
  Sex: Female

DRUGS (1)
  1. TIAMATE [Suspect]
     Route: 048

REACTIONS (12)
  - AGGRESSION [None]
  - AV DISSOCIATION [None]
  - BLOOD PRESSURE DECREASED [None]
  - BODY TEMPERATURE DECREASED [None]
  - CARDIAC ARREST [None]
  - CIRCULATORY COLLAPSE [None]
  - COMPLETED SUICIDE [None]
  - ELECTROCARDIOGRAM QT PROLONGED [None]
  - HEART RATE DECREASED [None]
  - OVERDOSE [None]
  - QRS AXIS ABNORMAL [None]
  - RESPIRATORY RATE INCREASED [None]
